FAERS Safety Report 8512101 (Version 4)
Quarter: 2013Q4

REPORT INFORMATION
  Report Type: Spontaneous
  Country: US (occurrence: US)
  Receive Date: 20120413
  Receipt Date: 20131129
  Transmission Date: 20140711
  Serious: Yes (Other)
  Sender: FDA-Public Use
  Company Number: US-ASTRAZENECA-2011SE32274

PATIENT
  Age: 65 Year
  Sex: Female
  Weight: 78.5 kg

DRUGS (25)
  1. NEXIUM [Suspect]
     Indication: GASTROOESOPHAGEAL REFLUX DISEASE
     Dosage: DAILY
     Route: 048
     Dates: start: 2003, end: 2010
  2. NEXIUM [Suspect]
     Indication: GASTROOESOPHAGEAL REFLUX DISEASE
     Dosage: DAILY
     Route: 048
     Dates: start: 2007
  3. NEXIUM [Suspect]
     Indication: GASTROOESOPHAGEAL REFLUX DISEASE
     Route: 048
     Dates: start: 20071008
  4. LISINOPRIL [Concomitant]
     Route: 048
     Dates: start: 20051129
  5. CRESTOR [Concomitant]
     Route: 048
     Dates: start: 20061012
  6. ROLAIDS [Concomitant]
     Dates: start: 1971, end: 1972
  7. TUMS [Concomitant]
     Dates: start: 1965, end: 1970
  8. INDOMETHACIN [Concomitant]
     Dates: start: 20050111
  9. LEVOTHYROXIN [Concomitant]
     Dates: start: 20050221
  10. LESCOL XL [Concomitant]
     Dates: start: 20050609
  11. MICARDIS HCT [Concomitant]
     Dosage: 40/12.5
     Dates: start: 20051123
  12. WELCHOL [Concomitant]
     Dates: start: 20051215
  13. OMACOR [Concomitant]
     Dates: start: 20060124
  14. ZETIA [Concomitant]
     Dates: start: 20060403
  15. PALGIC [Concomitant]
     Dates: start: 20061012
  16. MELOXICAM [Concomitant]
     Dates: start: 20070123
  17. BENZONATATE [Concomitant]
     Dates: start: 20070319
  18. DIOVAN [Concomitant]
     Dates: start: 20070413
  19. LEVAQUIN [Concomitant]
     Dates: start: 20070413
  20. ZYRTEC [Concomitant]
     Dates: start: 20070427
  21. ACIPHEX [Concomitant]
     Dates: start: 20070606
  22. AMOXICILLIN [Concomitant]
     Dates: start: 20070929
  23. METOPROLOL SUCCINATE [Concomitant]
     Route: 048
     Dates: start: 20071102
  24. CYCLOBENZAPR [Concomitant]
     Dates: start: 20080130
  25. BONIVA [Concomitant]
     Dates: start: 20080131

REACTIONS (7)
  - Fall [Unknown]
  - Rib fracture [Unknown]
  - Foot fracture [Unknown]
  - Hepatic failure [Unknown]
  - Osteoporosis [Unknown]
  - Cataract [Unknown]
  - Arthritis [Unknown]
